APPROVED DRUG PRODUCT: UCERIS
Active Ingredient: BUDESONIDE
Strength: 2MG/ACTUATION
Dosage Form/Route: AEROSOL, FOAM;RECTAL
Application: N205613 | Product #001 | TE Code: AB
Applicant: SALIX PHARMACEUTICALS INC
Approved: Oct 7, 2014 | RLD: Yes | RS: No | Type: RX